FAERS Safety Report 9565278 (Version 1)
Quarter: 2013Q3

REPORT INFORMATION
  Report Type: Spontaneous
  Country: CO (occurrence: CO)
  Receive Date: 20130930
  Receipt Date: 20130930
  Transmission Date: 20140515
  Serious: Yes (Other)
  Sender: FDA-Public Use
  Company Number: CO-PFIZER INC-2013278416

PATIENT
  Age: 78 Year
  Sex: Female

DRUGS (3)
  1. LYRICA [Suspect]
     Indication: ARTERIOSCLEROSIS
     Dosage: 150 MG, 1X/DAY
     Route: 048
     Dates: start: 201211
  2. CLONAZEPAM [Concomitant]
     Indication: SLEEP DISORDER
     Dosage: UNK
     Route: 048
     Dates: end: 201305
  3. CLOPIDOGREL [Concomitant]
     Indication: ARTERIOSCLEROSIS
     Dosage: 75 MG, 1X/DAY
     Route: 048
     Dates: start: 201304

REACTIONS (2)
  - Off label use [Unknown]
  - Spinal column stenosis [Unknown]
